FAERS Safety Report 12461059 (Version 2)
Quarter: 2016Q2

REPORT INFORMATION
  Report Type: Spontaneous
  Country: CH (occurrence: CH)
  Receive Date: 20160613
  Receipt Date: 20160619
  Transmission Date: 20160815
  Serious: Yes (Hospitalization, Other)
  Sender: FDA-Public Use
  Company Number: CH-JNJFOC-20160605683

PATIENT
  Age: 76 Year
  Sex: Male

DRUGS (5)
  1. BUSCOPAN [Concomitant]
     Active Substance: BUTYLSCOPOLAMINE BROMIDE
     Indication: PAIN
     Route: 065
  2. ASPIRIN CARDIO [Concomitant]
     Active Substance: ASPIRIN
     Route: 048
  3. NEXIUM [Concomitant]
     Active Substance: ESOMEPRAZOLE MAGNESIUM
     Route: 065
  4. XARELTO [Suspect]
     Active Substance: RIVAROXABAN
     Indication: THROMBOSIS PROPHYLAXIS
     Route: 048
     Dates: start: 20151118
  5. ATORVASTATIN [Concomitant]
     Active Substance: ATORVASTATIN
     Route: 065

REACTIONS (5)
  - Cholecystitis [Recovered/Resolved]
  - Post procedural bile leak [Recovered/Resolved]
  - Off label use [Unknown]
  - Pancreatitis relapsing [Unknown]
  - Pancreatitis relapsing [Recovered/Resolved]

NARRATIVE: CASE EVENT DATE: 201512
